FAERS Safety Report 19324818 (Version 1)
Quarter: 2021Q2

REPORT INFORMATION
  Report Type: Spontaneous
  Country: CN (occurrence: CN)
  Receive Date: 20210528
  Receipt Date: 20210528
  Transmission Date: 20210717
  Serious: Yes (Other)
  Sender: FDA-Public Use
  Company Number: CN-009507513-2105CHN006413

PATIENT
  Age: 45 Year
  Sex: Male
  Weight: 70 kg

DRUGS (4)
  1. PEMETREXED DISODIUM [Suspect]
     Active Substance: PEMETREXED DISODIUM
     Indication: LUNG NEOPLASM MALIGNANT
     Dosage: 0.9 GRAM, DAY 1, 1 TIME IN 1 DAY
     Route: 041
     Dates: start: 20210426, end: 20210426
  2. SODIUM CHLORIDE. [Concomitant]
     Active Substance: SODIUM CHLORIDE
     Dosage: 100 MILLILITER, DAY 2, 1 TIME IN 1 DAY
     Route: 041
     Dates: start: 20210427, end: 20210427
  3. KEYTRUDA [Suspect]
     Active Substance: PEMBROLIZUMAB
     Indication: LUNG NEOPLASM MALIGNANT
     Dosage: 200 MILLIGRAM, DAY 2, 1 TIME IN 1 DAY
     Route: 041
     Dates: start: 20210427, end: 20210427
  4. SODIUM CHLORIDE. [Concomitant]
     Active Substance: SODIUM CHLORIDE
     Indication: MEDICATION DILUTION
     Dosage: 150 MILLILITER, DAY 1, 1 TIME IN 1 DAY
     Route: 041
     Dates: start: 20210426, end: 20210426

REACTIONS (2)
  - White blood cell count decreased [Recovering/Resolving]
  - Neutrophil count decreased [Recovering/Resolving]

NARRATIVE: CASE EVENT DATE: 20210503
